FAERS Safety Report 23153653 (Version 2)
Quarter: 2023Q4

REPORT INFORMATION
  Report Type: Report from Study
  Country: US (occurrence: None)
  Receive Date: 20231107
  Receipt Date: 20231110
  Transmission Date: 20240110
  Serious: Yes (Other)
  Sender: FDA-Public Use
  Company Number: 2023A251912

PATIENT
  Sex: Male

DRUGS (11)
  1. FARXIGA [Suspect]
     Active Substance: DAPAGLIFLOZIN PROPANEDIOL
     Route: 048
  2. ADVIL PM [Concomitant]
     Dosage: 38-200 MG AT BEDTIME
     Route: 048
  3. ATORVASTATIN CALCIUM [Concomitant]
     Active Substance: ATORVASTATIN CALCIUM
     Indication: Blood cholesterol
     Route: 048
  4. CINNAMON [Concomitant]
     Active Substance: CINNAMON
     Route: 048
  5. LISINOPRIL [Concomitant]
     Active Substance: LISINOPRIL
     Route: 048
  6. METFORMIN HYDROCHLORIDE [Concomitant]
     Active Substance: METFORMIN HYDROCHLORIDE
     Route: 048
  7. VITAMINS [Concomitant]
     Active Substance: VITAMINS
     Route: 048
  8. PALMETTO [Concomitant]
     Route: 048
  9. ULTRAM [Concomitant]
     Active Substance: TRAMADOL HYDROCHLORIDE
     Route: 048
  10. OZEMPIC [Concomitant]
     Active Substance: SEMAGLUTIDE
     Dosage: 0.25MG TO0.5MG
     Route: 058
  11. PREDNISONE [Concomitant]
     Active Substance: PREDNISONE
     Route: 048

REACTIONS (6)
  - Fall [Recovered/Resolved]
  - Joint injury [Recovered/Resolved]
  - Hyperlipidaemia [Unknown]
  - Diabetic retinopathy [Unknown]
  - Body mass index increased [Unknown]
  - Hypertension [Unknown]
